FAERS Safety Report 17973433 (Version 1)
Quarter: 2020Q2

REPORT INFORMATION
  Report Type: Spontaneous
  Country: US (occurrence: US)
  Receive Date: 20200630
  Receipt Date: 20200630
  Transmission Date: 20200714
  Serious: Yes (Other)
  Sender: FDA-Public Use
  Company Number: None

PATIENT
  Age: 64 Year
  Sex: Female

DRUGS (1)
  1. PENTOXIFYLLINE 400MG ER TABLETS [Suspect]
     Active Substance: PENTOXIFYLLINE
     Indication: CARDIOVASCULAR DISORDER
     Dosage: ?          QUANTITY:1 TABLET;?
     Route: 048
     Dates: start: 20200628, end: 20200628

REACTIONS (3)
  - Lip swelling [None]
  - Cheilitis [None]
  - Urticaria [None]

NARRATIVE: CASE EVENT DATE: 20200628
